FAERS Safety Report 25925504 (Version 2)
Quarter: 2025Q4

REPORT INFORMATION
  Report Type: Report from Study
  Country: AU (occurrence: AU)
  Receive Date: 20251015
  Receipt Date: 20251111
  Transmission Date: 20260117
  Serious: Yes (Hospitalization)
  Sender: ABBVIE
  Company Number: AU-ABBVIE-6475378

PATIENT
  Sex: Male

DRUGS (1)
  1. VYALEV [Suspect]
     Active Substance: FOSCARBIDOPA\FOSLEVODOPA
     Indication: Product used for unknown indication
     Route: 058

REACTIONS (5)
  - Pneumonia aspiration [Unknown]
  - Dyskinesia [Unknown]
  - On and off phenomenon [Unknown]
  - Patient-device incompatibility [Unknown]
  - Device difficult to use [Unknown]
